FAERS Safety Report 6583851-7 (Version None)
Quarter: 2010Q1

REPORT INFORMATION
  Report Type: 
  Country: None (occurrence: None)
  Receive Date: 20100213
  Receipt Date: 20100213
  Transmission Date: 20100710
  Serious: No
  Sender: FDA-Public Use
  Company Number: None

PATIENT
  Age: 77 Year
  Sex: Female
  Weight: 66.6788 kg

DRUGS (1)
  1. ALBUTEROL 0.63 MG WATSON [Suspect]

REACTIONS (4)
  - DIZZINESS [None]
  - FALL [None]
  - GASTRIC DISORDER [None]
  - RASH [None]
